FAERS Safety Report 5688496-9 (Version None)
Quarter: 2008Q1

REPORT INFORMATION
  Report Type: 
  Country: None (occurrence: None)
  Receive Date: 20080331
  Receipt Date: 20080320
  Transmission Date: 20080703
  Serious: Yes (Other)
  Sender: FDA-Public Use
  Company Number: CA-JNJFOC-20080305574

PATIENT
  Sex: Female

DRUGS (1)
  1. REMICADE [Suspect]
     Indication: PSORIASIS
     Route: 042

REACTIONS (4)
  - ANXIETY [None]
  - ARTHRALGIA [None]
  - ARTHRITIS BACTERIAL [None]
  - SYSTEMIC LUPUS ERYTHEMATOSUS [None]
